FAERS Safety Report 5022095-7 (Version None)
Quarter: 2006Q2

REPORT INFORMATION
  Report Type: 
  Country: None (occurrence: None)
  Receive Date: 20060609
  Receipt Date: 20060602
  Transmission Date: 20061013
  Serious: Yes (Hospitalization)
  Sender: FDA-Public Use
  Company Number: PHRM2006FR01713

PATIENT
  Age: 31 Year
  Sex: Female

DRUGS (1)
  1. PARLODEL [Suspect]
     Indication: SUPPRESSED LACTATION
     Route: 048
     Dates: start: 20051104, end: 20051107

REACTIONS (16)
  - ANGIOGRAM CEREBRAL ABNORMAL [None]
  - APHASIA [None]
  - C-REACTIVE PROTEIN INCREASED [None]
  - CEREBRAL ISCHAEMIA [None]
  - CONFUSIONAL STATE [None]
  - DIFFICULTY IN WALKING [None]
  - DYSARTHRIA [None]
  - EPILEPSY [None]
  - HEADACHE [None]
  - HEMIPARESIS [None]
  - HYPERTENSION [None]
  - INFLAMMATION [None]
  - MENINGORRHAGIA [None]
  - PHONOPHOBIA [None]
  - PHOTOPHOBIA [None]
  - WHITE BLOOD CELL COUNT INCREASED [None]
